FAERS Safety Report 15034599 (Version 2)
Quarter: 2018Q3

REPORT INFORMATION
  Report Type: Report from Study
  Country: None (occurrence: US)
  Receive Date: 20180620
  Receipt Date: 20180801
  Transmission Date: 20181010
  Serious: Yes (Hospitalization, Other)
  Sender: FDA-Public Use
  Company Number: US-ABBVIE-18K-163-2391257-00

PATIENT
  Age: 56 Year
  Sex: Female

DRUGS (1)
  1. HUMIRA [Suspect]
     Active Substance: ADALIMUMAB
     Indication: RHEUMATOID ARTHRITIS
     Route: 058
     Dates: start: 20180501, end: 2018

REACTIONS (4)
  - Eye injury [Unknown]
  - Blindness [Recovering/Resolving]
  - Retinal detachment [Unknown]
  - Post-traumatic pain [Recovering/Resolving]

NARRATIVE: CASE EVENT DATE: 2018
